FAERS Safety Report 4897766-3 (Version None)
Quarter: 2006Q1

REPORT INFORMATION
  Report Type: 
  Country: None (occurrence: None)
  Receive Date: 20060130
  Receipt Date: 20060113
  Transmission Date: 20060701
  Serious: Yes (Hospitalization, Other)
  Sender: FDA-Public Use
  Company Number: A-US2006-11445

PATIENT
  Sex: Male

DRUGS (5)
  1. TRACLEER [Suspect]
     Indication: PULMONARY HYPERTENSION
  2. FLOLAN [Concomitant]
  3. HEPARIN [Concomitant]
  4. BETAMETHASONE [Concomitant]
  5. PRENATAL (THIAMINE, RETINOL, PYRIDOXINE HYDROCHLORIDE, POTASSIUM IODID [Concomitant]

REACTIONS (19)
  - ANAEMIA NEONATAL [None]
  - BREECH PRESENTATION [None]
  - CAESAREAN SECTION [None]
  - DRUG EXPOSURE DURING PREGNANCY [None]
  - ENTEROCOCCAL SEPSIS [None]
  - FEEDING DISORDER NEONATAL [None]
  - GASTROOESOPHAGEAL REFLUX DISEASE [None]
  - HYPERBILIRUBINAEMIA NEONATAL [None]
  - HYPERTENSION NEONATAL [None]
  - HYPOVOLAEMIA [None]
  - LUNG DISORDER [None]
  - METABOLIC ACIDOSIS [None]
  - NEONATAL DISORDER [None]
  - NEONATAL RESPIRATORY DISTRESS SYNDROME [None]
  - PATENT DUCTUS ARTERIOSUS [None]
  - PREMATURE BABY [None]
  - RETINOPATHY OF PREMATURITY [None]
  - THROMBOCYTOPENIA NEONATAL [None]
  - VENTRICULAR SEPTAL DEFECT [None]
